FAERS Safety Report 9339042 (Version 2)
Quarter: 2013Q3

REPORT INFORMATION
  Report Type: Spontaneous
  Country: US (occurrence: US)
  Receive Date: 20130610
  Receipt Date: 20130702
  Transmission Date: 20140515
  Serious: Yes (Other)
  Sender: FDA-Public Use
  Company Number: US-009507513-1306USA002326

PATIENT
  Age: 89 Year
  Sex: Male

DRUGS (3)
  1. ASMANEX TWISTHALER [Suspect]
     Dosage: 1 DF, QD; ROUTE: ORALLY INHALED
     Dates: start: 201012
  2. COREG [Concomitant]
  3. HYZAAR [Concomitant]

REACTIONS (3)
  - Cardiac pacemaker insertion [Unknown]
  - Cardiac disorder [Unknown]
  - Intercepted medication error [Unknown]
